FAERS Safety Report 9150954 (Version 1)
Quarter: 2013Q1

REPORT INFORMATION
  Report Type: Spontaneous
  Country: US (occurrence: US)
  Receive Date: 20130308
  Receipt Date: 20130308
  Transmission Date: 20140127
  Serious: No
  Sender: FDA-Public Use
  Company Number: US-GLAXOSMITHKLINE-A0975146A

PATIENT
  Age: 70 Year
  Sex: Male

DRUGS (4)
  1. OLUX E [Suspect]
     Indication: SKIN EXFOLIATION
     Dosage: 1APP AS REQUIRED
     Route: 061
     Dates: start: 2008
  2. SIMVASTATIN [Concomitant]
  3. LOSARTAN [Concomitant]
  4. UROXATRAL [Concomitant]

REACTIONS (3)
  - Upper respiratory tract infection [Unknown]
  - Oropharyngeal pain [Unknown]
  - Sinus congestion [Unknown]
